FAERS Safety Report 16361947 (Version 1)
Quarter: 2019Q2

REPORT INFORMATION
  Report Type: Spontaneous
  Country: IE (occurrence: IE)
  Receive Date: 20190528
  Receipt Date: 20190528
  Transmission Date: 20190711
  Serious: Yes (Death, Hospitalization)
  Sender: FDA-Public Use
  Company Number: IE-MYLANLABS-2017M1082237

PATIENT
  Sex: Male

DRUGS (1)
  1. CLOZARIL [Suspect]
     Active Substance: CLOZAPINE
     Indication: SCHIZOPHRENIA
     Dosage: UNK
     Route: 048
     Dates: start: 20161202

REACTIONS (4)
  - Lower respiratory tract infection [Unknown]
  - Disease complication [Fatal]
  - Parkinson^s disease [Fatal]
  - Confusional state [Unknown]

NARRATIVE: CASE EVENT DATE: 2017
